FAERS Safety Report 6682627-X (Version None)
Quarter: 2010Q2

REPORT INFORMATION
  Report Type: 
  Country: None (occurrence: None)
  Receive Date: 20100415
  Receipt Date: 20100406
  Transmission Date: 20101027
  Serious: Yes (Hospitalization)
  Sender: FDA-Public Use
  Company Number: PHHY2010GB19032

PATIENT
  Sex: Male

DRUGS (12)
  1. CLOZARIL [Suspect]
     Indication: SCHIZOPHRENIA
     Dosage: UNK
     Dates: start: 19980521
  2. OLANZAPINE [Concomitant]
     Dosage: 10 MG, BID
  3. PIRENZEPINE [Concomitant]
     Dosage: 50 MG, TID
  4. ATROPINE [Concomitant]
     Dosage: EYE DROPS ONE DAILY
  5. BECLOMETHASONE DIPROPIONATE [Concomitant]
     Dosage: 2 PUFFS DAILY
  6. VALPROATE SODIUM [Concomitant]
     Dosage: 1 G NOCTE
  7. LITHIUM CARBONATE [Concomitant]
  8. TAMSULOSIN HCL [Concomitant]
     Dosage: 400 UG
  9. LEVOTHYROXINE SODIUM [Concomitant]
     Dosage: 200 UG
  10. FERROUS FUMARATE [Concomitant]
     Dosage: 210 MG
  11. OMEPRAZOLE [Concomitant]
     Dosage: 20 MG, BID
  12. SALBUTAMOL [Concomitant]
     Dosage: PRN

REACTIONS (4)
  - FALL [None]
  - INFECTION [None]
  - LOWER LIMB FRACTURE [None]
  - MENTAL IMPAIRMENT [None]
